FAERS Safety Report 6566634-3 (Version None)
Quarter: 2010Q1

REPORT INFORMATION
  Report Type: 
  Country: None (occurrence: None)
  Receive Date: 20100202
  Receipt Date: 20100122
  Transmission Date: 20100710
  Serious: Yes (Hospitalization)
  Sender: FDA-Public Use
  Company Number: DE-WYE-G05394910

PATIENT
  Sex: Male
  Weight: 72 kg

DRUGS (15)
  1. TORISEL [Suspect]
     Route: 042
     Dates: start: 20081110, end: 20081229
  2. TORISEL [Suspect]
     Route: 042
     Dates: start: 20090123, end: 20090123
  3. TORISEL [Suspect]
     Route: 042
     Dates: start: 20090206, end: 20090313
  4. METAMIZOLE [Concomitant]
  5. SIMVASTATIN [Concomitant]
  6. RANITIDINE [Concomitant]
     Indication: PREMEDICATION
     Route: 048
     Dates: start: 20081110, end: 20081229
  7. RANITIDINE [Concomitant]
     Dates: start: 20090123, end: 20090123
  8. RANITIDINE [Concomitant]
     Dates: start: 20090206, end: 20090313
  9. NEXIUM [Concomitant]
  10. EMSELEX [Concomitant]
  11. CLEMASTINE FUMARATE [Concomitant]
     Indication: PREMEDICATION
     Route: 042
     Dates: start: 20081110, end: 20081222
  12. CLEMASTINE FUMARATE [Concomitant]
     Dates: start: 20081229, end: 20081229
  13. CLEMASTINE FUMARATE [Concomitant]
     Dates: start: 20090123, end: 20090313
  14. IBUPROFEN [Concomitant]
  15. FENISTIL [Concomitant]

REACTIONS (3)
  - CHEST PAIN [None]
  - INFUSION RELATED REACTION [None]
  - PANIC ATTACK [None]
